FAERS Safety Report 9650804 (Version 1)
Quarter: 2013Q4

REPORT INFORMATION
  Report Type: Spontaneous
  Country: IR (occurrence: IR)
  Receive Date: 20131029
  Receipt Date: 20131029
  Transmission Date: 20140711
  Serious: Yes (Hospitalization)
  Sender: FDA-Public Use
  Company Number: IR-ROXANE LABORATORIES, INC.-2013-RO-01727RO

PATIENT
  Age: 43 Year
  Sex: Female

DRUGS (7)
  1. MYCOPHENOLATE MOFETIL [Suspect]
     Indication: RENAL TRANSPLANT
     Dosage: 2 G
  2. CYCLOSPORINE [Suspect]
     Indication: RENAL TRANSPLANT
     Dosage: 100 MG
  3. ANTI-TUBERCULOSIS MEDICATION [Suspect]
     Indication: TUBERCULOSIS
  4. GANCICLOVIR [Suspect]
  5. PREDNISOLONE [Suspect]
     Indication: TUBERCULOSIS
     Dosage: 10 MG
  6. VALGANCICLOVIR [Suspect]
  7. AMPHOTERICIN B [Suspect]
     Indication: PYREXIA

REACTIONS (2)
  - Immune reconstitution inflammatory syndrome [Recovered/Resolved]
  - Tuberculosis [Recovered/Resolved]
